FAERS Safety Report 4614834-1 (Version None)
Quarter: 2005Q1

REPORT INFORMATION
  Report Type: 
  Country: None (occurrence: None)
  Receive Date: 20050318
  Receipt Date: 20050318
  Transmission Date: 20050727
  Serious: Yes (Hospitalization)
  Sender: FDA-Public Use
  Company Number: None

PATIENT
  Sex: Male
  Weight: 78.2 kg

DRUGS (6)
  1. GEFITINIB  250MG TABS,  ASTRAZENECA [Suspect]
     Indication: GLIOBLASTOMA MULTIFORME
     Dosage: 1000MG PO DAILY
     Route: 048
     Dates: start: 20050125
  2. RAPAMUNE [Suspect]
     Indication: GLIOBLASTOMA MULTIFORME
     Dosage: 5        PO DAILY
     Route: 048
     Dates: start: 20050125
  3. PROZAC [Concomitant]
  4. PREVACID [Concomitant]
  5. DILANTIN [Concomitant]
  6. DECADRON [Concomitant]

REACTIONS (4)
  - DEHYDRATION [None]
  - NAUSEA [None]
  - NEOPLASM PROGRESSION [None]
  - VOMITING [None]
